FAERS Safety Report 9496744 (Version 1)
Quarter: 2013Q3

REPORT INFORMATION
  Report Type: Spontaneous
  Country: GB (occurrence: None)
  Receive Date: 20130830
  Receipt Date: 20130830
  Transmission Date: 20140515
  Serious: Yes (Other)
  Sender: FDA-Public Use
  Company Number: GB-DEXPHARM-20130507

PATIENT
  Age: 46 Year
  Sex: Female

DRUGS (6)
  1. OMEPRAZOLE [Suspect]
     Dates: start: 20130806
  2. AMOXICILLIN [Concomitant]
  3. AVAMYS [Concomitant]
  4. GAVISCON ADVANCE [Concomitant]
  5. MEDROXYPROGESTERONE ACETATE [Concomitant]
  6. RANITIDINE [Concomitant]

REACTIONS (1)
  - Photopsia [None]
